FAERS Safety Report 6268094-9 (Version None)
Quarter: 2009Q3

REPORT INFORMATION
  Report Type: 
  Country: None (occurrence: None)
  Receive Date: 20090715
  Receipt Date: 20070529
  Transmission Date: 20100115
  Serious: Yes (Other)
  Sender: FDA-Public Use
  Company Number: US-ASTRAZENECA-2006UW23368

PATIENT
  Age: 17736 Day
  Sex: Male
  Weight: 103.4 kg

DRUGS (21)
  1. SEROQUEL [Suspect]
     Dosage: 200 MG - 800 MG
     Route: 048
     Dates: start: 20020107
  2. SEROQUEL [Suspect]
     Route: 048
  3. DEPAKOTE [Concomitant]
  4. LISINOPRIL [Concomitant]
  5. GLUCOPHAGE [Concomitant]
  6. CYCLOBENZAPRINE [Concomitant]
  7. INSULIN [Concomitant]
  8. ACETYLSALICYLIC ACID SRT [Concomitant]
  9. SILDENAFIL [Concomitant]
  10. ENALAPRIL MALEATE [Concomitant]
  11. GEMFIBROZIL [Concomitant]
  12. LOVASTATIN [Concomitant]
  13. ZETIA [Concomitant]
  14. ISORDIL [Concomitant]
  15. RISPERIDONE [Concomitant]
  16. KLONOPIN [Concomitant]
  17. DOXEPIN HCL [Concomitant]
  18. COGENTIN [Concomitant]
  19. TENORMIN [Concomitant]
  20. GLIPIZIDE [Concomitant]
  21. HALDOL [Concomitant]

REACTIONS (2)
  - DIABETES MELLITUS [None]
  - NEUROPATHY PERIPHERAL [None]
